FAERS Safety Report 7602704-6 (Version None)
Quarter: 2011Q2

REPORT INFORMATION
  Report Type: 
  Country: None (occurrence: None)
  Receive Date: 20110630
  Receipt Date: 20110615
  Transmission Date: 20111010
  Serious: Yes (Hospitalization)
  Sender: FDA-Public Use
  Company Number: 2011US0195

PATIENT
  Age: 3 Year
  Sex: Female

DRUGS (6)
  1. CANAKINUMAB (CANAKINUMAB) [Concomitant]
  2. METHOTREXATE (DINATRIUMMETOTREXAT) [Concomitant]
  3. KINERET [Suspect]
     Indication: JUVENILE ARTHRITIS
     Dosage: 1 IN 1 D, SUBCUTANEOUS
     Route: 058
     Dates: start: 20090101, end: 20110401
  4. FOLIC ACID (FOLIC ACID, B VITAMIN) [Concomitant]
  5. PREDNISONE [Concomitant]
  6. NEORAL [Concomitant]

REACTIONS (9)
  - OFF LABEL USE [None]
  - THERAPEUTIC PRODUCT INEFFECTIVE FOR UNAPPROVED INDICATION [None]
  - HISTIOCYTOSIS HAEMATOPHAGIC [None]
  - CLUBBING [None]
  - JUVENILE ARTHRITIS [None]
  - BRONCHIECTASIS [None]
  - LYMPHADENOPATHY [None]
  - CONDITION AGGRAVATED [None]
  - EOSINOPHILIA [None]
